FAERS Safety Report 16014672 (Version 1)
Quarter: 2019Q1

REPORT INFORMATION
  Report Type: Spontaneous
  Country: US (occurrence: US)
  Receive Date: 20190131
  Receipt Date: 20190131
  Transmission Date: 20190418
  Serious: No
  Sender: FDA-Public Use
  Company Number: None

PATIENT

DRUGS (1)
  1. 3% NACL NEB [Suspect]
     Active Substance: SODIUM CHLORIDE

REACTIONS (2)
  - Product packaging confusion [None]
  - Intercepted product selection error [None]
